FAERS Safety Report 16564698 (Version 1)
Quarter: 2019Q3

REPORT INFORMATION
  Report Type: Spontaneous
  Country: US (occurrence: US)
  Receive Date: 20190711
  Receipt Date: 20190711
  Transmission Date: 20191004
  Serious: Yes (Other)
  Sender: FDA-Public Use
  Company Number: None

PATIENT
  Age: 58 Year
  Sex: Female

DRUGS (1)
  1. DR SMITHS DIAPER RASH [Suspect]
     Active Substance: ZINC OXIDE
     Indication: RASH
     Dosage: ?          QUANTITY:1 SPRAY(S);?
     Route: 061
     Dates: start: 20190708, end: 20190710

REACTIONS (4)
  - Pain of skin [None]
  - Skin haemorrhage [None]
  - Rash [None]
  - Skin fissures [None]

NARRATIVE: CASE EVENT DATE: 20190708
